FAERS Safety Report 7290336-1 (Version None)
Quarter: 2011Q1

REPORT INFORMATION
  Report Type: 
  Country: None (occurrence: None)
  Receive Date: 20110214
  Receipt Date: 20110131
  Transmission Date: 20110831
  Serious: Yes (Death, Life-Threatening, Hospitalization, Other)
  Sender: FDA-Public Use
  Company Number: JP-BAYER-201011676BYL

PATIENT
  Sex: Female
  Weight: 71 kg

DRUGS (8)
  1. NEXAVAR [Suspect]
     Dosage: 400 MG, QOD
     Route: 048
     Dates: start: 20091121, end: 20091128
  2. GLYCYRON [Concomitant]
     Dosage: SINCE BEFORE ADMINISTRATION
     Route: 048
  3. LASIX [Concomitant]
     Dosage: SINCE BEFORE ADMINISTRATION
     Route: 048
  4. ALDACTONE [Concomitant]
     Route: 048
  5. LIVACT [Concomitant]
     Dosage: SINCE BEFORE ADMINISTRATION
     Route: 048
  6. NEXAVAR [Suspect]
     Indication: HEPATIC NEOPLASM MALIGNANT
     Dosage: 400 MG (DAILY DOSE), , ORAL
     Route: 048
     Dates: start: 20091029, end: 20091116
  7. URSO 250 [Concomitant]
     Dosage: SINCE BEFORE ADMINISTRATION
     Route: 048
  8. UREPEARL [Concomitant]
     Indication: PROPHYLAXIS
     Dosage: SINCE BEFORE ADMINISTRATION
     Route: 061

REACTIONS (8)
  - HEPATIC NEOPLASM MALIGNANT [None]
  - HYPERURICAEMIA [None]
  - RASH [None]
  - HEPATIC FUNCTION ABNORMAL [None]
  - C-REACTIVE PROTEIN INCREASED [None]
  - PALMAR-PLANTAR ERYTHRODYSAESTHESIA SYNDROME [None]
  - RENAL IMPAIRMENT [None]
  - ASCITES [None]
